FAERS Safety Report 9896788 (Version 2)
Quarter: 2014Q1

REPORT INFORMATION
  Report Type: Spontaneous
  Country: US (occurrence: US)
  Receive Date: 20140213
  Receipt Date: 20140213
  Transmission Date: 20141002
  Serious: No
  Sender: FDA-Public Use
  Company Number: US-BRISTOL-MYERS SQUIBB COMPANY-19200005

PATIENT
  Age: 68 Year
  Sex: Female
  Weight: 89.79 kg

DRUGS (10)
  1. ABATACEPT SUBQ INJECTION 125MG/ML [Suspect]
     Indication: RHEUMATOID ARTHRITIS
     Dosage: 1DF=125 MG/ML.?INJECT 1ML (125MG) SUBCUTANEOUSLY?EVERY WEEK.
     Route: 058
  2. CALTRATE + D [Concomitant]
     Dosage: TABS.?1DF=600-800 UNITS NOS.
  3. PREDNISONE [Concomitant]
     Dosage: TABS.
  4. OMEPRAZOLE [Concomitant]
     Dosage: CAPS.
  5. TOPROL XL [Concomitant]
     Dosage: TABS.
  6. FISH OIL [Concomitant]
     Dosage: CAPS.
  7. EXCEDRIN [Concomitant]
     Dosage: TABS.
  8. VITAMIN B COMPLEX [Concomitant]
     Dosage: TABS.
  9. BIOTIN [Concomitant]
     Dosage: CAPS.?1DF=5000 UNIT NOS.
  10. OMEGA-3 [Concomitant]
     Dosage: CAPS.

REACTIONS (1)
  - Fungal infection [Recovered/Resolved]
